FAERS Safety Report 21737405 (Version 1)
Quarter: 2022Q4

REPORT INFORMATION
  Report Type: Spontaneous
  Country: CN (occurrence: CN)
  Receive Date: 20221216
  Receipt Date: 20221216
  Transmission Date: 20230113
  Serious: No
  Sender: FDA-Public Use
  Company Number: CN-PADAGIS-2022PAD01082

PATIENT

DRUGS (2)
  1. MUPIROCIN [Suspect]
     Active Substance: MUPIROCIN
     Indication: Rash maculo-papular
     Dosage: UNK, (4 DAYS)
     Route: 065
  2. TACROLIMUS [Suspect]
     Active Substance: TACROLIMUS
     Indication: Rash maculo-papular
     Dosage: UNK, (4 DAYS)
     Route: 065

REACTIONS (1)
  - Drug ineffective for unapproved indication [Unknown]
